FAERS Safety Report 5660004-8 (Version None)
Quarter: 2008Q1

REPORT INFORMATION
  Report Type: 
  Country: None (occurrence: None)
  Receive Date: 20080306
  Receipt Date: 20080229
  Transmission Date: 20080703
  Serious: Yes (Hospitalization, Other)
  Sender: FDA-Public Use
  Company Number: 2008SP002308

PATIENT
  Age: 47 Year
  Sex: Female
  Weight: 77.1115 kg

DRUGS (2)
  1. PEG-INTRON [Suspect]
     Indication: HEPATITIS C
     Dosage: SC
     Route: 058
     Dates: start: 20071228
  2. RIBAVIRIN [Suspect]
     Indication: HEPATITIS C
     Dosage: PO
     Route: 048
     Dates: start: 20071228

REACTIONS (11)
  - ANAEMIA [None]
  - BLISTER [None]
  - BLOOD GLUCOSE INCREASED [None]
  - CAUSTIC INJURY [None]
  - DEHYDRATION [None]
  - HAEMATEMESIS [None]
  - LOSS OF CONSCIOUSNESS [None]
  - NAUSEA [None]
  - VIRAL INFECTION [None]
  - VISION BLURRED [None]
  - WEIGHT DECREASED [None]
